FAERS Safety Report 6838333-1 (Version None)
Quarter: 2010Q3

REPORT INFORMATION
  Report Type: 
  Country: None (occurrence: None)
  Receive Date: 20100713
  Receipt Date: 20070604
  Transmission Date: 20110219
  Serious: No
  Sender: FDA-Public Use
  Company Number: US-PFIZER INC-2007035298

PATIENT
  Sex: Male
  Weight: 120.2 kg

DRUGS (2)
  1. CHANTIX [Suspect]
     Indication: SMOKING CESSATION THERAPY
     Dates: start: 20070301
  2. LEXAPRO [Suspect]
     Dates: start: 20060101, end: 20070101

REACTIONS (6)
  - DYSGEUSIA [None]
  - ERECTILE DYSFUNCTION [None]
  - FLATULENCE [None]
  - HYPOAESTHESIA [None]
  - NERVOUS SYSTEM DISORDER [None]
  - PARAESTHESIA [None]
